FAERS Safety Report 20684195 (Version 2)
Quarter: 2022Q2

REPORT INFORMATION
  Report Type: Report from Study
  Country: IL (occurrence: IL)
  Receive Date: 20220407
  Receipt Date: 20220412
  Transmission Date: 20220721
  Serious: Yes (Other)
  Sender: FDA-Public Use
  Company Number: IL-JNJFOC-20220364361

PATIENT

DRUGS (1)
  1. REMICADE [Suspect]
     Active Substance: INFLIXIMAB
     Indication: Inflammatory bowel disease
     Route: 042

REACTIONS (14)
  - Pneumonia [Unknown]
  - Tonsillitis [Unknown]
  - Drug specific antibody present [Unknown]
  - Rash [Unknown]
  - Pruritus [Unknown]
  - Dizziness [Unknown]
  - Headache [Unknown]
  - Paraesthesia [Unknown]
  - Nausea [Unknown]
  - Vomiting [Unknown]
  - Urinary tract infection [Unknown]
  - Myalgia [Unknown]
  - Bone pain [Unknown]
  - Muscular weakness [Unknown]
